FAERS Safety Report 7710141-9 (Version None)
Quarter: 2011Q3

REPORT INFORMATION
  Report Type: 
  Country: None (occurrence: None)
  Receive Date: 20110825
  Receipt Date: 20110825
  Transmission Date: 20111222
  Serious: Yes (Other)
  Sender: FDA-Public Use
  Company Number: US-ABBOTT-11P-163-0844051-00

PATIENT
  Sex: Female
  Weight: 104.42 kg

DRUGS (14)
  1. HUMIRA [Suspect]
     Indication: RHEUMATOID ARTHRITIS
     Dates: start: 20090101
  2. CALCITRIOL [Concomitant]
     Indication: PARATHYROID DISORDER
  3. ASPIRIN [Concomitant]
     Indication: CARDIOVASCULAR EVENT PROPHYLAXIS
  4. FUROSEMIDE [Concomitant]
     Indication: FLUID RETENTION
  5. LISINOPRIL [Concomitant]
     Indication: HYPERTENSION
  6. FUROSEMIDE [Concomitant]
     Indication: HYPERTENSION
  7. VITAMIN D [Concomitant]
     Indication: VITAMIN SUPPLEMENTATION
  8. TYLENOL-500 [Concomitant]
     Indication: OSTEOARTHRITIS
  9. ASPIRIN [Concomitant]
     Dates: start: 20100101
  10. SODIUM BICARBONATE [Concomitant]
     Indication: RENAL DISORDER
  11. TYLENOL-500 [Concomitant]
     Indication: RHEUMATOID ARTHRITIS
  12. VITAMIN B-12 [Concomitant]
     Indication: VITAMIN SUPPLEMENTATION
  13. HUMIRA [Suspect]
     Dates: start: 20100701
  14. HUMIRA [Suspect]
     Dates: start: 20090101

REACTIONS (3)
  - DEAFNESS [None]
  - VIRAL INFECTION [None]
  - SUDDEN HEARING LOSS [None]
